FAERS Safety Report 7198364-1 (Version None)
Quarter: 2010Q4

REPORT INFORMATION
  Report Type: 
  Country: None (occurrence: None)
  Receive Date: 20101227
  Receipt Date: 20101216
  Transmission Date: 20110411
  Serious: No
  Sender: FDA-Public Use
  Company Number: US-JNJFOC-20101206859

PATIENT
  Sex: Female
  Weight: 79.38 kg

DRUGS (2)
  1. FENTANYL-100 [Suspect]
     Indication: PAIN
     Dosage: (50UG/HR AND 75UG/HR)(NDC- 0781-7242-55 FOR 75MCG), (NDC-0781-7243-55 FOR 50MCG)
     Route: 062
  2. UNKNOWN MEDICATION [Concomitant]
     Indication: ILL-DEFINED DISORDER
     Route: 065

REACTIONS (1)
  - WRONG TECHNIQUE IN DRUG USAGE PROCESS [None]
